FAERS Safety Report 12849329 (Version 1)
Quarter: 2016Q4

REPORT INFORMATION
  Report Type: Spontaneous
  Country: ES (occurrence: ES)
  Receive Date: 20161014
  Receipt Date: 20161014
  Transmission Date: 20170207
  Serious: Yes (Hospitalization)
  Sender: FDA-Public Use
  Company Number: ES-SEBELA IRELAND LIMITED-2016SEB01483

PATIENT
  Age: 13 Year
  Sex: Female

DRUGS (2)
  1. AZATHIOPRINE. [Suspect]
     Active Substance: AZATHIOPRINE
     Indication: CROHN^S DISEASE
     Dosage: 2.5 MG/KG, 1X/DAY
     Route: 048
  2. MESALAZINE [Concomitant]
     Active Substance: MESALAMINE
     Route: 048

REACTIONS (4)
  - Abdominal pain [Recovered/Resolved]
  - Rectal haemorrhage [Recovered/Resolved]
  - Gingival bleeding [Recovered/Resolved]
  - Pancytopenia [Recovered/Resolved]
